FAERS Safety Report 6604289-X (Version None)
Quarter: 2010Q1

REPORT INFORMATION
  Report Type: 
  Country: None (occurrence: None)
  Receive Date: 20100226
  Receipt Date: 20090824
  Transmission Date: 20100710
  Serious: No
  Sender: FDA-Public Use
  Company Number: A0801102A

PATIENT
  Age: 55 Year
  Sex: Female

DRUGS (5)
  1. LAMICTAL CD [Suspect]
     Indication: BIPOLAR DISORDER
     Dosage: 100MG PER DAY
     Route: 048
     Dates: start: 20090701
  2. WELLBUTRIN [Suspect]
     Indication: DRUG USE FOR UNKNOWN INDICATION
     Route: 048
  3. BLOOD PRESSURE MEDICATION [Suspect]
     Indication: HYPERTENSION
     Route: 065
  4. LITHIUM [Concomitant]
  5. TRAZODONE HCL [Concomitant]

REACTIONS (2)
  - COORDINATION ABNORMAL [None]
  - IMPAIRED DRIVING ABILITY [None]
